FAERS Safety Report 23283767 (Version 4)
Quarter: 2023Q4

REPORT INFORMATION
  Report Type: Report from Study
  Country: KR (occurrence: KR)
  Receive Date: 20231211
  Receipt Date: 20231230
  Transmission Date: 20240110
  Serious: Yes (Hospitalization)
  Sender: FDA-Public Use
  Company Number: KR-ABBVIE-5527360

PATIENT
  Age: 13 Year
  Sex: Female
  Weight: 39 kg

DRUGS (8)
  1. HUMIRA [Suspect]
     Active Substance: ADALIMUMAB
     Indication: Colitis ulcerative
     Dosage: FORM STRENGTH: 40 MILLIGRAM?FREQUENCY TEXT: ONCE
     Route: 058
     Dates: start: 20231026, end: 20231026
  2. HUMIRA [Suspect]
     Active Substance: ADALIMUMAB
     Dosage: FORM STRENGTH: 40 MILLIGRAM?FREQUENCY TEXT: ONCE
     Route: 058
     Dates: start: 20231004, end: 20231004
  3. HUMIRA [Suspect]
     Active Substance: ADALIMUMAB
     Dosage: FORM STRENGTH: 40 MILLIGRAM?FREQUENCY TEXT: ONCE
     Route: 058
     Dates: start: 20231013, end: 20231013
  4. HUMIRA [Suspect]
     Active Substance: ADALIMUMAB
     Dosage: FORM STRENGTH: 40 MILLIGRAM?FREQUENCY TEXT: ONCE
     Route: 058
     Dates: start: 20231025, end: 20231025
  5. HUMIRA [Suspect]
     Active Substance: ADALIMUMAB
     Dosage: FORM STRENGTH: 40 MILLIGRAM
     Route: 058
     Dates: start: 20231108, end: 20231206
  6. HUMIRA [Suspect]
     Active Substance: ADALIMUMAB
     Dosage: FORM STRENGTH- 40 MG
     Route: 058
     Dates: start: 20231215
  7. BOLGRE [Concomitant]
     Indication: Anaemia prophylaxis
  8. PREDNISOLONE [Concomitant]
     Active Substance: PREDNISOLONE
     Indication: Inflammation
     Dosage: FORM STRENGTH: 5 MG
     Dates: start: 202207

REACTIONS (7)
  - Diarrhoea [Recovered/Resolved]
  - Muscle tightness [Recovered/Resolved]
  - Musculoskeletal discomfort [Recovered/Resolved]
  - Pyrexia [Recovered/Resolved]
  - Tension headache [Recovered/Resolved]
  - Head discomfort [Recovered/Resolved]
  - Proctitis [Unknown]

NARRATIVE: CASE EVENT DATE: 20231001
